FAERS Safety Report 9877750 (Version 1)
Quarter: 2014Q1

REPORT INFORMATION
  Report Type: Spontaneous
  Country: US (occurrence: None)
  Receive Date: 20140204
  Receipt Date: 20140204
  Transmission Date: 20141002
  Serious: Yes (Hospitalization)
  Sender: FDA-Public Use
  Company Number: LIT-14-0002

PATIENT
  Age: 4 Year
  Sex: Female

DRUGS (3)
  1. VALPROIC ACID [Suspect]
     Indication: COMPLEX PARTIAL SEIZURES
  2. LACOSAMIDE [Concomitant]
  3. OXCARBAZEPINE [Concomitant]

REACTIONS (8)
  - Toxicity to various agents [None]
  - Decreased appetite [None]
  - Dizziness [None]
  - Gait disturbance [None]
  - Somnolence [None]
  - Hyperammonaemic encephalopathy [None]
  - Bone marrow failure [None]
  - Drug interaction [None]
